FAERS Safety Report 8505677-7 (Version None)
Quarter: 2012Q3

REPORT INFORMATION
  Report Type: 
  Country: None (occurrence: None)
  Receive Date: 20120712
  Receipt Date: 20120711
  Transmission Date: 20120928
  Serious: Yes (Other)
  Sender: FDA-Public Use
  Company Number: US-PFIZER INC-2012150049

PATIENT
  Sex: Female
  Weight: 77.098 kg

DRUGS (4)
  1. INSULIN [Concomitant]
  2. AZATHIOPRINE [Concomitant]
     Indication: TRANSPLANT
     Dosage: 75 MG, 1X/DAY
     Route: 048
     Dates: start: 20090511
  3. RAPAMUNE [Suspect]
     Indication: TRANSPLANT
     Dosage: 4 MG, 1X/DAY
     Route: 048
     Dates: start: 20040305, end: 20090728
  4. MYCOPHENOLATE MEFETIL [Suspect]
     Indication: TRANSPLANT
     Dosage: 500 MG, 2X/DAY
     Route: 048
     Dates: start: 20060719, end: 20090511

REACTIONS (1)
  - ABORTION SPONTANEOUS [None]
